FAERS Safety Report 13390654 (Version 1)
Quarter: 2017Q1

REPORT INFORMATION
  Report Type: Spontaneous
  Country: US (occurrence: US)
  Receive Date: 20170330
  Receipt Date: 20170330
  Transmission Date: 20170429
  Serious: Yes (Hospitalization)
  Sender: FDA-Public Use
  Company Number: None

PATIENT
  Age: 61 Year
  Sex: Female

DRUGS (11)
  1. METHADONE [Concomitant]
     Active Substance: METHADONE HYDROCHLORIDE
  2. VENLAFAXINE [Concomitant]
     Active Substance: VENLAFAXINE HYDROCHLORIDE
  3. BENICAR [Concomitant]
     Active Substance: OLMESARTAN MEDOXOMIL
  4. TEMAZEPAM. [Concomitant]
     Active Substance: TEMAZEPAM
  5. ENBREL [Suspect]
     Active Substance: ETANERCEPT
     Indication: RHEUMATOID ARTHRITIS
     Dosage: 50MG/ML PFS QW SQ
     Route: 058
     Dates: start: 20140514
  6. MELOXICAM. [Concomitant]
     Active Substance: MELOXICAM
  7. ORPHENADRINE [Concomitant]
     Active Substance: ORPHENADRINE
  8. HYDROCODONE BITARTRATE. [Concomitant]
     Active Substance: HYDROCODONE BITARTRATE
  9. PREDNISONE. [Concomitant]
     Active Substance: PREDNISONE
  10. LEXAPRO [Concomitant]
     Active Substance: ESCITALOPRAM OXALATE
  11. LEFLUNOMIDE. [Concomitant]
     Active Substance: LEFLUNOMIDE

REACTIONS (4)
  - Staphylococcal infection [None]
  - Therapy cessation [None]
  - Hip arthroplasty [None]
  - Post procedural infection [None]

NARRATIVE: CASE EVENT DATE: 201701
